FAERS Safety Report 21914455 (Version 1)
Quarter: 2023Q1

REPORT INFORMATION
  Report Type: Spontaneous
  Country: US (occurrence: US)
  Receive Date: 20230126
  Receipt Date: 20230126
  Transmission Date: 20230418
  Serious: Yes (Hospitalization, Other)
  Sender: FDA-Public Use
  Company Number: US-BRISTOL-MYERS SQUIBB COMPANY-2023-010915

PATIENT
  Age: 74 Year
  Sex: Female
  Weight: 104.3 kg

DRUGS (1)
  1. REVLIMID [Suspect]
     Active Substance: LENALIDOMIDE
     Indication: Myelodysplastic syndrome
     Dosage: DAILY FOR 21DAYS
     Route: 048
     Dates: start: 20220501, end: 202212

REACTIONS (7)
  - Pulmonary embolism [Unknown]
  - Deep vein thrombosis [Unknown]
  - Arthritis [Unknown]
  - Muscular weakness [Unknown]
  - Infection [Unknown]
  - Blood uric acid increased [Unknown]
  - Off label use [Unknown]
